FAERS Safety Report 7116768-X (Version None)
Quarter: 2010Q4

REPORT INFORMATION
  Report Type: 
  Country: None (occurrence: None)
  Receive Date: 20101122
  Receipt Date: 20101115
  Transmission Date: 20110411
  Serious: Yes (Hospitalization)
  Sender: FDA-Public Use
  Company Number: DE-ELI_LILLY_AND_COMPANY-DE201009005051

PATIENT
  Sex: Female
  Weight: 63 kg

DRUGS (6)
  1. GEMCITABINE HCL [Suspect]
     Indication: NON-SMALL CELL LUNG CANCER
     Dosage: 2080 MG, OTHER
     Route: 042
     Dates: start: 20100715, end: 20100917
  2. GEMCITABINE HCL [Suspect]
     Dates: start: 20100924
  3. CISPLATIN [Suspect]
     Indication: NON-SMALL CELL LUNG CANCER
     Dosage: 125 MG, OTHER
     Route: 042
     Dates: start: 20100715, end: 20100917
  4. CISPLATIN [Suspect]
     Dates: start: 20100924
  5. PIPRIL [Concomitant]
     Dosage: 4 G, UNK
     Route: 042
  6. COMBACTAM [Concomitant]
     Dosage: 0.5 G, UNK
     Route: 042

REACTIONS (2)
  - DYSPNOEA [None]
  - PNEUMONIA [None]
